FAERS Safety Report 5724059-4 (Version None)
Quarter: 2008Q2

REPORT INFORMATION
  Report Type: 
  Country: None (occurrence: None)
  Receive Date: 20080430
  Receipt Date: 20080429
  Transmission Date: 20081010
  Serious: Yes (Death, Hospitalization)
  Sender: FDA-Public Use
  Company Number: FR-BOEHRINGER INGELHEIM GMBH, GERMANY-2008-FF-00277FF

PATIENT
  Sex: Male

DRUGS (3)
  1. SPIRIVA [Suspect]
     Route: 055
  2. TRIATEC [Suspect]
  3. CORTICOIDS [Concomitant]

REACTIONS (2)
  - DEATH [None]
  - RASH PUSTULAR [None]
